FAERS Safety Report 6468290-1 (Version None)
Quarter: 2009Q4

REPORT INFORMATION
  Report Type: 
  Country: None (occurrence: None)
  Receive Date: 20091130
  Receipt Date: 20091111
  Transmission Date: 20100525
  Serious: Yes (Death)
  Sender: FDA-Public Use
  Company Number: POMP-1000772

PATIENT
  Sex: Female

DRUGS (1)
  1. MYOZYME  (ALGLUCOSIDASE ALFA) POWDER FOR SOLUTION [Suspect]
     Indication: GLYCOGEN STORAGE DISEASE TYPE II

REACTIONS (1)
  - MULTI-ORGAN FAILURE [None]
